FAERS Safety Report 13847884 (Version 3)
Quarter: 2021Q1

REPORT INFORMATION
  Report Type: Spontaneous
  Country: US (occurrence: US)
  Receive Date: 20170809
  Receipt Date: 20210209
  Transmission Date: 20210419
  Serious: Yes (Other)
  Sender: FDA-Public Use
  Company Number: US-PURDUE-USA-2017-0139866

PATIENT
  Sex: Female

DRUGS (2)
  1. BUTRANS [Suspect]
     Active Substance: BUPRENORPHINE
     Indication: ARTHRITIS
     Dosage: 15 MCG/HR, WEEKLY
     Route: 062
     Dates: start: 201707
  2. BUTRANS [Suspect]
     Active Substance: BUPRENORPHINE
     Indication: PAIN
     Dosage: 20 MCG/HR, WEEKLY
     Route: 062
     Dates: start: 201707

REACTIONS (18)
  - Chills [Unknown]
  - Feeling abnormal [Unknown]
  - Inappropriate schedule of product administration [Recovered/Resolved]
  - Crying [Unknown]
  - Pain [Unknown]
  - Hyperhidrosis [Unknown]
  - Urinary incontinence [Unknown]
  - Gastrointestinal disorder [Unknown]
  - Unevaluable event [Unknown]
  - Product quality issue [Unknown]
  - Drug withdrawal syndrome [Unknown]
  - Therapeutic product effect decreased [Recovered/Resolved]
  - Tremor [Unknown]
  - Feeling cold [Unknown]
  - Overdose [Recovered/Resolved]
  - Drug ineffective [Recovered/Resolved]
  - Moaning [Unknown]
  - Asthenia [Unknown]

NARRATIVE: CASE EVENT DATE: 20170707
